FAERS Safety Report 10137420 (Version 1)
Quarter: 2014Q2

REPORT INFORMATION
  Report Type: Spontaneous
  Country: US (occurrence: US)
  Receive Date: 20140429
  Receipt Date: 20140429
  Transmission Date: 20141212
  Serious: Yes (Hospitalization, Other)
  Sender: FDA-Public Use
  Company Number: US-BAYER-2014-059651

PATIENT
  Age: 39 Year
  Sex: Female
  Weight: 119.73 kg

DRUGS (8)
  1. YAZ [Suspect]
  2. BENAZEPRIL W/HYDROCHLOROTHIAZIDE [Concomitant]
     Dosage: UNK
     Dates: start: 20081128
  3. FLUVOXAMINE [Concomitant]
     Dosage: 100 MG, UNK
     Dates: start: 20090116
  4. NEXIUM [Concomitant]
     Indication: GASTROINTESTINAL DISORDER
     Dosage: 40 MG, UNK
     Route: 048
     Dates: start: 20090201
  5. NAPROXEN [Concomitant]
     Dosage: 500 MG, UNK
     Dates: start: 20090202
  6. LOTENSIN HCT [Concomitant]
     Indication: HYPERTENSION
     Dosage: 20MG/12.5 MG
     Route: 048
     Dates: start: 20090212
  7. LUVOX [Concomitant]
     Dosage: 200 MG, UNK
     Route: 048
     Dates: start: 20090212
  8. KEFLEX [Concomitant]

REACTIONS (2)
  - Thrombophlebitis superficial [None]
  - Deep vein thrombosis [None]
